FAERS Safety Report 14837608 (Version 1)
Quarter: 2018Q2

REPORT INFORMATION
  Report Type: Report from Study
  Country: US (occurrence: US)
  Receive Date: 20180502
  Receipt Date: 20180502
  Transmission Date: 20180711
  Serious: Yes (Hospitalization)
  Sender: FDA-Public Use
  Company Number: US-TAKEDA-2018TUS013487

PATIENT
  Sex: Female

DRUGS (1)
  1. PONATINIB [Suspect]
     Active Substance: PONATINIB
     Indication: ACUTE LYMPHOCYTIC LEUKAEMIA
     Dosage: 15 MG, QD
     Route: 048
     Dates: start: 20180305

REACTIONS (5)
  - Pollakiuria [Unknown]
  - Eructation [Unknown]
  - Urinary tract infection [Unknown]
  - Gastrooesophageal reflux disease [Unknown]
  - Gastrointestinal tube insertion [Unknown]
